FAERS Safety Report 4703032-9 (Version None)
Quarter: 2005Q2

REPORT INFORMATION
  Report Type: 
  Country: None (occurrence: None)
  Receive Date: 20050628
  Receipt Date: 20050628
  Transmission Date: 20051028
  Serious: Yes (Other)
  Sender: FDA-Public Use
  Company Number: None

PATIENT
  Age: 58 Year
  Sex: Female
  Weight: 61.2356 kg

DRUGS (1)
  1. PREDNISONE [Suspect]
     Indication: PSORIATIC ARTHROPATHY
     Dosage: PRED PACK

REACTIONS (2)
  - CONDITION AGGRAVATED [None]
  - MENOPAUSAL SYMPTOMS [None]
